FAERS Safety Report 24354430 (Version 1)
Quarter: 2024Q3

REPORT INFORMATION
  Report Type: Spontaneous
  Country: GB (occurrence: None)
  Receive Date: 20240923
  Receipt Date: 20240923
  Transmission Date: 20241017
  Serious: Yes (Other)
  Sender: ETHYPHARM
  Company Number: None

PATIENT

DRUGS (1)
  1. BUPRENORPHINE [Suspect]
     Active Substance: BUPRENORPHINE
     Indication: Adverse drug reaction
     Dosage: 2MG
     Dates: start: 20240905

REACTIONS (3)
  - Swollen tongue [Recovered/Resolved]
  - Eye swelling [Recovered/Resolved]
  - Tongue blistering [Recovered/Resolved]

NARRATIVE: CASE EVENT DATE: 20240906
